FAERS Safety Report 12730199 (Version 1)
Quarter: 2016Q3

REPORT INFORMATION
  Report Type: Report from Study
  Country: AR (occurrence: AR)
  Receive Date: 20160909
  Receipt Date: 20160909
  Transmission Date: 20161109
  Serious: Yes (Other)
  Sender: FDA-Public Use
  Company Number: AR-ABBVIE-16K-007-1723167-00

PATIENT
  Age: 60 Year
  Sex: Female

DRUGS (2)
  1. DELTISONA B [Concomitant]
     Indication: PRODUCT USED FOR UNKNOWN INDICATION
     Route: 048
  2. HUMIRA [Suspect]
     Active Substance: ADALIMUMAB
     Indication: RHEUMATOID ARTHRITIS
     Route: 058
     Dates: start: 20160125

REACTIONS (2)
  - Syncope [Recovering/Resolving]
  - Blindness [Recovering/Resolving]

NARRATIVE: CASE EVENT DATE: 201608
